FAERS Safety Report 7423768-9 (Version None)
Quarter: 2011Q2

REPORT INFORMATION
  Report Type: 
  Country: None (occurrence: None)
  Receive Date: 20110411
  Receipt Date: 20110328
  Transmission Date: 20111010
  Serious: Yes (Death, Life-Threatening)
  Sender: FDA-Public Use
  Company Number: 2011001486

PATIENT
  Age: 51 Year
  Sex: Male

DRUGS (5)
  1. SIMVASTATIN [Concomitant]
  2. TARCEVA [Suspect]
     Indication: NON-SMALL CELL LUNG CANCER
     Dosage: 150 MG, 1 IN 1 D, ORAL
     Route: 048
     Dates: start: 20100603, end: 20110103
  3. MIRTAZAPINE [Concomitant]
  4. OXYCONTIN [Concomitant]
  5. ATENOLOL [Concomitant]

REACTIONS (3)
  - PULMONARY EMBOLISM [None]
  - MYOCARDIAL INFARCTION [None]
  - ANGINA UNSTABLE [None]
